FAERS Safety Report 9158110 (Version 4)
Quarter: 2013Q3

REPORT INFORMATION
  Report Type: Spontaneous
  Country: US (occurrence: None)
  Receive Date: 20130212
  Receipt Date: 20130815
  Transmission Date: 20140515
  Serious: Yes (Hospitalization, Other)
  Sender: FDA-Public Use
  Company Number: ADR-2013-00212

PATIENT
  Age: 68 Year
  Sex: Female

DRUGS (1)
  1. LIORESAL [Suspect]

REACTIONS (5)
  - Unresponsive to stimuli [None]
  - Mental status changes [None]
  - Respiratory depression [None]
  - Bradycardia [None]
  - Overdose [None]
